FAERS Safety Report 10617695 (Version 3)
Quarter: 2015Q2

REPORT INFORMATION
  Report Type: Report from Study
  Country: JP (occurrence: JP)
  Receive Date: 20141201
  Receipt Date: 20150415
  Transmission Date: 20150821
  Serious: Yes (Death)
  Sender: FDA-Public Use
  Company Number: JP-009507513-1412JPN000046

PATIENT
  Age: 79 Year
  Sex: Male

DRUGS (9)
  1. LASIX [Concomitant]
     Active Substance: FUROSEMIDE
     Dosage: UNK, UNKNOWN
     Dates: start: 20140408, end: 20140409
  2. CEFAMEZIN [Concomitant]
     Active Substance: CEFAZOLIN
     Dosage: UNK, UNKNOWN
     Dates: start: 20140409, end: 20140409
  3. FOSAPREPITANT DIMEGLUMINE [Suspect]
     Active Substance: FOSAPREPITANT DIMEGLUMINE
     Indication: PROPHYLAXIS OF NAUSEA AND VOMITING
     Dosage: 150 MG, QD
     Route: 041
     Dates: start: 20140408, end: 20140408
  4. FLUOROURACIL. [Concomitant]
     Active Substance: FLUOROURACIL
     Dosage: UNK UNK, UNKNOWN
     Dates: start: 20140408, end: 20140412
  5. ALOXI [Concomitant]
     Active Substance: PALONOSETRON HYDROCHLORIDE
     Dosage: UNK, UNKNOWN
     Dates: start: 20140408, end: 20140408
  6. CISPLATIN. [Concomitant]
     Active Substance: CISPLATIN
     Dosage: UNK UNK, UNKNOWN
     Dates: start: 20140408, end: 20140408
  7. PRIMPERAN [Concomitant]
     Active Substance: METOCLOPRAMIDE HYDROCHLORIDE
     Dosage: UNK, UNKNOWN
     Dates: start: 20140408, end: 20140409
  8. GASTER [Concomitant]
     Active Substance: FAMOTIDINE
     Dosage: UNK UNK, UNKNOWN
     Dates: start: 20140408, end: 20140409
  9. DEXAMETHASONE SODIUM PHOSPHATE. [Concomitant]
     Active Substance: DEXAMETHASONE SODIUM PHOSPHATE
     Dosage: UNK, UNKNOWN
     Dates: start: 20140408, end: 20140408

REACTIONS (1)
  - Sudden death [Fatal]

NARRATIVE: CASE EVENT DATE: 20140419
